FAERS Safety Report 6703622-8 (Version None)
Quarter: 2010Q2

REPORT INFORMATION
  Report Type: 
  Country: None (occurrence: None)
  Receive Date: 20100430
  Receipt Date: 20100430
  Transmission Date: 20101027
  Serious: Yes (Hospitalization)
  Sender: FDA-Public Use
  Company Number: PHHO2009FR03173

PATIENT
  Sex: Female
  Weight: 64 kg

DRUGS (3)
  1. ACLASTA/ZOLEDRONATE T29581+A+SOLINJ [Suspect]
     Indication: OSTEOPOROSIS POSTMENOPAUSAL
     Dosage: 5 MG ONCE A YEAR
     Route: 042
     Dates: start: 20060324, end: 20080306
  2. VITAMIN D [Concomitant]
  3. CALCIUM [Concomitant]

REACTIONS (7)
  - DISEASE PROGRESSION [None]
  - JOINT INJURY [None]
  - KNEE ARTHROPLASTY [None]
  - KNEE DEFORMITY [None]
  - MALAISE [None]
  - OSTEOARTHRITIS [None]
  - OSTEONECROSIS [None]
